FAERS Safety Report 4281360-1 (Version None)
Quarter: 2004Q1

REPORT INFORMATION
  Report Type: 
  Country: None (occurrence: None)
  Receive Date: 20040112
  Receipt Date: 20031017
  Transmission Date: 20041129
  Serious: Yes (Other)
  Sender: FDA-Public Use
  Company Number: 349564

PATIENT
  Age: 44 Year
  Sex: Male
  Weight: 78.9 kg

DRUGS (5)
  1. FUZEON [Suspect]
     Indication: HIV INFECTION
     Dosage: 90 MG 2 PER DAY SUBCUTANEOUS
     Route: 058
     Dates: start: 20031016
  2. FUZEON [Suspect]
     Indication: DRUG USE FOR UNKNOWN INDICATION
     Dosage: 0.1 ML 1 PER ONE DOSE SUBCUTANEOUS
     Route: 058
     Dates: start: 20031017, end: 20031017
  3. NORVIR [Concomitant]
  4. AGENERASE [Concomitant]
  5. VIREAD (TENOFAVIR) [Concomitant]

REACTIONS (4)
  - INJECTION SITE PAIN [None]
  - INJECTION SITE REACTION [None]
  - MEDICATION ERROR [None]
  - NO ADVERSE EFFECT [None]
